FAERS Safety Report 6439905-9 (Version None)
Quarter: 2009Q4

REPORT INFORMATION
  Report Type: 
  Country: None (occurrence: None)
  Receive Date: 20091112
  Receipt Date: 20091112
  Transmission Date: 20100525
  Serious: No
  Sender: FDA-Public Use
  Company Number: None

PATIENT
  Age: 49 Year
  Sex: Female
  Weight: 89.8122 kg

DRUGS (2)
  1. NABUMETONE [Suspect]
     Dosage: 750 MG BID PO
     Route: 048
     Dates: start: 20090918, end: 20090926
  2. METHOCARBAMOL [Suspect]
     Dosage: 500 MG QHS PO
     Route: 048
     Dates: start: 20090918, end: 20090926

REACTIONS (2)
  - EYE SWELLING [None]
  - VISION BLURRED [None]
